FAERS Safety Report 14900341 (Version 1)
Quarter: 2018Q2

REPORT INFORMATION
  Report Type: Spontaneous
  Country: US (occurrence: US)
  Receive Date: 20180427
  Receipt Date: 20180427
  Transmission Date: 20180711
  Serious: Yes (Hospitalization)
  Sender: FDA-Public Use
  Company Number: None

PATIENT
  Age: 79 Year
  Sex: Female
  Weight: 56.47 kg

DRUGS (14)
  1. OSCAL [Concomitant]
     Active Substance: CALCIUM CARBONATE
     Dates: start: 20180404
  2. MELATONIN [Concomitant]
     Active Substance: MELATONIN
     Dates: start: 20180404
  3. LACTULOSE. [Concomitant]
     Active Substance: LACTULOSE
     Dates: start: 20180404
  4. MVI WITH IRON [Concomitant]
     Dates: start: 20180404
  5. FISH OIL [Concomitant]
     Active Substance: FISH OIL
     Dates: start: 20180404
  6. RISPERIDONE. [Concomitant]
     Active Substance: RISPERIDONE
     Dates: start: 20180404
  7. SENNA [Concomitant]
     Active Substance: SENNA LEAF\SENNOSIDES\SENNOSIDES A AND B
     Dates: start: 20180404
  8. GLYCERIN SUPP [Concomitant]
     Dates: start: 20180404
  9. HYDROCHLOROTHIAZIDE. [Concomitant]
     Active Substance: HYDROCHLOROTHIAZIDE
     Dates: start: 20180404
  10. OXCARBAZEPINE. [Suspect]
     Active Substance: OXCARBAZEPINE
     Route: 048
     Dates: start: 20180404, end: 20180405
  11. BRIMONIDINE OPH SOL [Concomitant]
     Dates: start: 20180404
  12. LATANOPROST OPH SOL [Concomitant]
     Dates: start: 20180404
  13. LEVOTHYROXINE. [Concomitant]
     Active Substance: LEVOTHYROXINE
     Dates: start: 20180404
  14. TRAZODONE [Concomitant]
     Active Substance: TRAZODONE HYDROCHLORIDE
     Dates: start: 20180404

REACTIONS (1)
  - Muscular weakness [None]

NARRATIVE: CASE EVENT DATE: 20180404
